FAERS Safety Report 9973081 (Version 1)
Quarter: 2014Q1

REPORT INFORMATION
  Report Type: Spontaneous
  Country: US (occurrence: US)
  Receive Date: 20140306
  Receipt Date: 20140306
  Transmission Date: 20141002
  Serious: Yes (Hospitalization)
  Sender: FDA-Public Use
  Company Number: US-BRISTOL-MYERS SQUIBB COMPANY-20351177

PATIENT
  Sex: Male

DRUGS (2)
  1. ABILIFY [Suspect]
  2. ABILIFY MAINTENA INJECTION [Suspect]
     Route: 030

REACTIONS (1)
  - Psychiatric decompensation [Unknown]
